FAERS Safety Report 8202068-3 (Version None)
Quarter: 2012Q1

REPORT INFORMATION
  Report Type: 
  Country: None (occurrence: None)
  Receive Date: 20120308
  Receipt Date: 20120227
  Transmission Date: 20120608
  Serious: Yes (Hospitalization)
  Sender: FDA-Public Use
  Company Number: 1212139

PATIENT
  Age: 29 Year
  Sex: Female

DRUGS (6)
  1. METHYLPREDNISOLONE [Concomitant]
  2. POTASSIUM CHLORIDE [Concomitant]
  3. EPINEPHRINE [Suspect]
     Indication: ANAPHYLACTIC REACTION
     Dosage: 1 MG MILLIGRAM(S), INTRAMUSCULAR ; 1 MG MILLIGRAM(S), INTRAMUSCULAR
     Route: 030
  4. SODIUM CHLORIDE [Concomitant]
  5. (OXYGEN) [Concomitant]
  6. DIPHENHYDRAMINE HCL [Concomitant]

REACTIONS (11)
  - BRADYCARDIA [None]
  - MYALGIA [None]
  - ERYTHEMA [None]
  - ABDOMINAL PAIN [None]
  - TRICUSPID VALVE INCOMPETENCE [None]
  - HYPOTENSION [None]
  - CHEST PAIN [None]
  - SINUS BRADYCARDIA [None]
  - TOXICITY TO VARIOUS AGENTS [None]
  - ELECTROCARDIOGRAM ST SEGMENT ABNORMAL [None]
  - HEADACHE [None]
